FAERS Safety Report 12646276 (Version 1)
Quarter: 2016Q3

REPORT INFORMATION
  Report Type: Spontaneous
  Country: US (occurrence: US)
  Receive Date: 20160812
  Receipt Date: 20160812
  Transmission Date: 20161109
  Serious: Yes (Hospitalization)
  Sender: FDA-Public Use
  Company Number: US-ASTRAZENECA-2016SE85839

PATIENT
  Sex: Male

DRUGS (3)
  1. BRIO [Concomitant]
     Dosage: INJECTABLE PEN
  2. SYMBICORT [Suspect]
     Active Substance: BUDESONIDE\FORMOTEROL FUMARATE DIHYDRATE
     Dosage: TWO PUFFS TWICE A DAY
     Route: 055
  3. VICTOZA [Concomitant]
     Active Substance: LIRAGLUTIDE
     Dosage: INJECTABLE PEN

REACTIONS (6)
  - Pulmonary embolism [Recovered/Resolved]
  - Intentional product misuse [Unknown]
  - Drug ineffective [Recovered/Resolved]
  - Accident [Unknown]
  - Coma [Recovered/Resolved]
  - Weight decreased [Recovered/Resolved]

NARRATIVE: CASE EVENT DATE: 2014
